FAERS Safety Report 8523121-0 (Version None)
Quarter: 2012Q3

REPORT INFORMATION
  Report Type: 
  Country: None (occurrence: None)
  Receive Date: 20120720
  Receipt Date: 20120717
  Transmission Date: 20120928
  Serious: No
  Sender: FDA-Public Use
  Company Number: US-PFIZER INC-2012173583

PATIENT
  Sex: Female
  Weight: 62.132 kg

DRUGS (3)
  1. CHANTIX [Suspect]
     Dosage: UNK
     Dates: start: 20120101
  2. CHANTIX [Suspect]
     Indication: SMOKING CESSATION THERAPY
     Dosage: 0.5 MG, UNK
     Dates: start: 20120616, end: 20120101
  3. FLUOXETINE HYDROCHLORIDE [Concomitant]
     Indication: DEPRESSION
     Dosage: 20 MG, DAILY

REACTIONS (2)
  - ABDOMINAL PAIN UPPER [None]
  - ABNORMAL DREAMS [None]
